FAERS Safety Report 6164664-7 (Version None)
Quarter: 2009Q2

REPORT INFORMATION
  Report Type: 
  Country: None (occurrence: None)
  Receive Date: 20090423
  Receipt Date: 20090414
  Transmission Date: 20091009
  Serious: Yes (Hospitalization)
  Sender: FDA-Public Use
  Company Number: DE-ASTRAZENECA-2009PK01060

PATIENT
  Age: 64 Year
  Sex: Female

DRUGS (5)
  1. SEROQUEL [Suspect]
     Route: 048
     Dates: start: 20070710, end: 20070710
  2. REMERGIL [Concomitant]
     Dates: start: 20070601
  3. LORAZEPAM [Concomitant]
     Dates: start: 20070710
  4. CIPRAMIL [Concomitant]
     Dates: start: 20070601
  5. LORAZEPAM [Concomitant]
     Dates: start: 20070711

REACTIONS (1)
  - URGE INCONTINENCE [None]
